FAERS Safety Report 13856593 (Version 1)
Quarter: 2017Q3

REPORT INFORMATION
  Report Type: Spontaneous
  Country: US (occurrence: US)
  Receive Date: 20170810
  Receipt Date: 20170810
  Transmission Date: 20171127
  Serious: No
  Sender: FDA-Public Use
  Company Number: US-ROCHE-1352165

PATIENT
  Sex: Female

DRUGS (1)
  1. TAMIFLU [Suspect]
     Active Substance: OSELTAMIVIR PHOSPHATE
     Indication: INFLUENZA
     Dosage: ^GIVEN 10 TABS^
     Route: 048
     Dates: start: 20140215

REACTIONS (7)
  - Paranasal sinus hypersecretion [Recovering/Resolving]
  - Pain of skin [Unknown]
  - Dry eye [Unknown]
  - Dry eye [Recovering/Resolving]
  - Facial pain [Unknown]
  - Headache [Unknown]
  - Facial pain [Recovering/Resolving]
